FAERS Safety Report 7247041-7 (Version None)
Quarter: 2011Q1

REPORT INFORMATION
  Report Type: 
  Country: None (occurrence: None)
  Receive Date: 20110127
  Receipt Date: 20110119
  Transmission Date: 20110831
  Serious: Yes (Death, Other)
  Sender: FDA-Public Use
  Company Number: DE-GENZYME-FLUD-1000658

PATIENT
  Age: 55 Year
  Sex: Male

DRUGS (9)
  1. CAMPATH [Suspect]
     Indication: STEM CELL TRANSPLANT
     Dosage: UNK
     Route: 065
  2. CYCLOPHOSPHAMIDE [Suspect]
     Indication: STEM CELL TRANSPLANT
  3. FLUCONAZOLE [Concomitant]
     Indication: INFECTION PROPHYLAXIS
  4. ACYCLOVIR [Concomitant]
     Indication: INFECTION PROPHYLAXIS
  5. MYCOPHENOLATE MOFETIL [Concomitant]
     Indication: PROPHYLAXIS AGAINST GRAFT VERSUS HOST DISEASE
     Dosage: 15 MG/KG, QD
  6. TRIMETHOPRIM + SULFAMETHOXAZOLE [Concomitant]
     Indication: INFECTION PROPHYLAXIS
  7. FLUDARA [Suspect]
     Indication: ACUTE GRAFT VERSUS HOST DISEASE
     Dosage: UNK
     Route: 065
  8. CAMPATH [Suspect]
     Dosage: 20 MG, Q 2-3 WEEKS
     Route: 065
  9. CYCLOSPORINE [Concomitant]
     Indication: PROPHYLAXIS AGAINST GRAFT VERSUS HOST DISEASE
     Dosage: 3 MG/KG, QD, 3 MG/KG, QD, STARTING DAY -1

REACTIONS (5)
  - CYTOMEGALOVIRUS INFECTION [None]
  - DEATH [None]
  - ACUTE GRAFT VERSUS HOST DISEASE [None]
  - PNEUMONIA [None]
  - SYSTEMIC INFLAMMATORY RESPONSE SYNDROME [None]
